FAERS Safety Report 20206331 (Version 1)
Quarter: 2021Q4

REPORT INFORMATION
  Report Type: Spontaneous
  Country: US (occurrence: US)
  Receive Date: 20211220
  Receipt Date: 20211220
  Transmission Date: 20220303
  Serious: No
  Sender: FDA-Public Use
  Company Number: US-SA-SAC20211215000087

PATIENT
  Sex: Female

DRUGS (1)
  1. TAXOTERE [Suspect]
     Active Substance: DOCETAXEL
     Indication: Breast cancer

REACTIONS (5)
  - Dacryostenosis acquired [Unknown]
  - Quality of life decreased [Unknown]
  - Eye irritation [Unknown]
  - Eye swelling [Unknown]
  - Lacrimation increased [Unknown]
